FAERS Safety Report 7051199-2 (Version None)
Quarter: 2010Q4

REPORT INFORMATION
  Report Type: 
  Country: None (occurrence: None)
  Receive Date: 20101019
  Receipt Date: 20101014
  Transmission Date: 20110411
  Serious: Yes (Death, Hospitalization, Other)
  Sender: FDA-Public Use
  Company Number: PHHY2010DE68424

PATIENT
  Sex: Female

DRUGS (4)
  1. ZOLEDRONATE T29581+ [Suspect]
     Dosage: 4 MG, EVERY FOUR WEEKS
     Route: 042
     Dates: start: 20090825, end: 20100622
  2. EPIRUBICIN [Concomitant]
     Dosage: SIX CYCLES
     Dates: start: 20090825, end: 20091216
  3. TAXOTERE [Concomitant]
     Dosage: UNK
     Dates: start: 20090825, end: 20091216
  4. LETROZOLE [Concomitant]
     Dosage: UNK
     Dates: start: 20100126

REACTIONS (4)
  - GENERAL PHYSICAL HEALTH DETERIORATION [None]
  - LYMPHADENECTOMY [None]
  - MASTECTOMY [None]
  - METASTASIS [None]
